FAERS Safety Report 10173508 (Version 1)
Quarter: 2014Q2

REPORT INFORMATION
  Report Type: Spontaneous
  Country: US (occurrence: None)
  Receive Date: 20140514
  Receipt Date: 20140514
  Transmission Date: 20141212
  Serious: No
  Sender: FDA-Public Use
  Company Number: None

PATIENT
  Age: 53 Year
  Sex: Female
  Weight: 72.58 kg

DRUGS (1)
  1. BRILINTA [Suspect]
     Dosage: 1 TABS TWICE DAILY TAKEN BY MOUTH
     Route: 048

REACTIONS (5)
  - Dyspnoea [None]
  - Cough [None]
  - Activities of daily living impaired [None]
  - Sleep disorder [None]
  - Menstrual disorder [None]
